FAERS Safety Report 17560311 (Version 1)
Quarter: 2020Q1

REPORT INFORMATION
  Report Type: Spontaneous
  Country: SI (occurrence: SI)
  Receive Date: 20200319
  Receipt Date: 20200319
  Transmission Date: 20200409
  Serious: Yes (Other)
  Sender: FDA-Public Use
  Company Number: NVSC2020SI075227

PATIENT
  Sex: Female

DRUGS (3)
  1. ARCOXIA [Suspect]
     Active Substance: ETORICOXIB
     Indication: ANTIINFLAMMATORY THERAPY
     Dosage: 90 MG, UNKNOWN
     Route: 065
  2. ANALGIN (METAMIZOLE SODIUM MONOHYDRATE) [Suspect]
     Active Substance: DIPYRONE
     Indication: ANTIINFLAMMATORY THERAPY
     Dosage: UNK
     Route: 048
  3. IBUPROFEN. [Suspect]
     Active Substance: IBUPROFEN
     Indication: ANTIINFLAMMATORY THERAPY
     Dosage: 1 DF, UNKNOWN  (AT FIRST 400 MG THEN 600 MG)
     Route: 065

REACTIONS (13)
  - Sleep disorder [Unknown]
  - Balance disorder [Unknown]
  - Oropharyngeal pain [Unknown]
  - Productive cough [Unknown]
  - Lacrimation disorder [Unknown]
  - Arrhythmia [Unknown]
  - Thirst [Unknown]
  - Consciousness fluctuating [Unknown]
  - Dizziness [Unknown]
  - Dermatitis allergic [Unknown]
  - Eye irritation [Unknown]
  - Nasal dryness [Unknown]
  - Stomatitis [Unknown]

NARRATIVE: CASE EVENT DATE: 2019
